FAERS Safety Report 21895160 (Version 3)
Quarter: 2023Q1

REPORT INFORMATION
  Report Type: Other
  Country: US (occurrence: None)
  Receive Date: 20230122
  Receipt Date: 20230223
  Transmission Date: 20230417
  Serious: Yes (Death)
  Sender: FDA-Public Use
  Company Number: US-ROCHE-3268831

PATIENT
  Age: 86 Year
  Sex: Male

DRUGS (10)
  1. ERIVEDGE [Suspect]
     Active Substance: VISMODEGIB
     Indication: Basal cell carcinoma
     Route: 048
  2. ATORVASTATIN CALCIUM [Concomitant]
     Active Substance: ATORVASTATIN CALCIUM
     Route: 048
     Dates: start: 20221005
  3. CARVEDILOL [Concomitant]
     Active Substance: CARVEDILOL
     Dates: start: 20220420
  4. DILTIAZEM HYDROCHLORIDE [Concomitant]
     Active Substance: DILTIAZEM HYDROCHLORIDE
     Route: 048
     Dates: start: 20200817
  5. FOLIC ACID [Concomitant]
     Active Substance: FOLIC ACID
     Route: 048
     Dates: start: 20221005
  6. PANTOPRAZOLE SODIUM [Concomitant]
     Active Substance: PANTOPRAZOLE SODIUM
     Route: 048
     Dates: start: 20220420
  7. PAROXETINE HYDROCHLORIDE [Concomitant]
     Active Substance: PAROXETINE HYDROCHLORIDE
     Route: 048
     Dates: start: 20200817
  8. POTASSIUM CHLORIDE [Concomitant]
     Active Substance: POTASSIUM CHLORIDE
     Route: 048
     Dates: start: 20220420
  9. TORSEMIDE [Concomitant]
     Active Substance: TORSEMIDE
     Route: 048
     Dates: start: 20200817
  10. WARFARIN SODIUM [Concomitant]
     Active Substance: WARFARIN SODIUM
     Route: 048
     Dates: start: 20220420

REACTIONS (1)
  - Death [Fatal]
